FAERS Safety Report 7475175-0 (Version None)
Quarter: 2011Q2

REPORT INFORMATION
  Report Type: 
  Country: None (occurrence: None)
  Receive Date: 20110512
  Receipt Date: 20110504
  Transmission Date: 20111010
  Serious: Yes (Other)
  Sender: FDA-Public Use
  Company Number: ES-BRISTOL-MYERS SQUIBB COMPANY-15628365

PATIENT
  Age: 75 Year
  Sex: Female

DRUGS (4)
  1. NYSTATIN [Suspect]
     Indication: ORAL FUNGAL INFECTION
     Route: 048
     Dates: start: 20110228, end: 20110303
  2. AMITRIPTYLINE HCL [Concomitant]
     Indication: TENSION HEADACHE
  3. AMITRIPTYLINE HCL [Concomitant]
     Indication: DRY MOUTH
  4. NYSTATIN [Suspect]
     Indication: DRY MOUTH
     Route: 048
     Dates: start: 20110228, end: 20110303

REACTIONS (3)
  - ABDOMINAL PAIN UPPER [None]
  - OESOPHAGITIS [None]
  - ORAL PAIN [None]
